FAERS Safety Report 18873940 (Version 1)
Quarter: 2021Q1

REPORT INFORMATION
  Report Type: Report from Study
  Country: None (occurrence: US)
  Receive Date: 20210210
  Receipt Date: 20210210
  Transmission Date: 20210420
  Serious: Yes (Other)
  Sender: FDA-Public Use
  Company Number: US-INSMED, INC.-US-INS-20-02285

PATIENT
  Sex: Female

DRUGS (1)
  1. ARIKAYCE [Suspect]
     Active Substance: AMIKACIN
     Indication: PRODUCT USED FOR UNKNOWN INDICATION
     Route: 055
     Dates: start: 20201118

REACTIONS (6)
  - Haemorrhage [Unknown]
  - Adverse drug reaction [Unknown]
  - Diarrhoea [Unknown]
  - Device issue [Unknown]
  - Accidental underdose [Unknown]
  - Aphonia [Recovered/Resolved]
